FAERS Safety Report 9550045 (Version 1)
Quarter: 2013Q3

REPORT INFORMATION
  Report Type: Spontaneous
  Country: US (occurrence: US)
  Receive Date: 20130924
  Receipt Date: 20130924
  Transmission Date: 20140515
  Serious: No
  Sender: FDA-Public Use
  Company Number: US-009507513-1302USA011919

PATIENT
  Age: 27 Year
  Sex: Female

DRUGS (5)
  1. BETAMETHASONE [Suspect]
     Indication: STEROID THERAPY
     Dosage: 12 MG,  EVERY 24 HOURS FOR 2 DOSES
  2. BETAMETHASONE [Suspect]
     Dosage: AT 28 WEEKS OF GESATATION,12 MG,  EVERY 24 HOURS FOR 2 DOSESUNK
  3. VITAMINS (UNSPECIFIED) [Concomitant]
  4. GLYBURIDE [Concomitant]
     Indication: GESTATIONAL DIABETES
     Dosage: 2.5 MG, QD,STARTED AT 27 WEEKS OF GESTATION
  5. GLYBURIDE [Concomitant]
     Dosage: 2.5 MG, BID,AT 28 WEEK OF GESTATION

REACTIONS (1)
  - Exposure during pregnancy [Recovered/Resolved]
